FAERS Safety Report 25151815 (Version 1)
Quarter: 2025Q2

REPORT INFORMATION
  Report Type: Spontaneous
  Country: DE (occurrence: DE)
  Receive Date: 20250402
  Receipt Date: 20250402
  Transmission Date: 20250716
  Serious: Yes (Other)
  Sender: AMGEN
  Company Number: DE-AMGEN-DEUSP2025061347

PATIENT

DRUGS (1)
  1. ADALIMUMAB [Suspect]
     Active Substance: ADALIMUMAB
     Indication: Psoriasis
     Route: 065

REACTIONS (8)
  - Inflammatory bowel disease [Unknown]
  - Adverse event [Unknown]
  - Neoplasm malignant [Unknown]
  - Infection [Unknown]
  - Skin cancer [Unknown]
  - Opportunistic infection [Unknown]
  - Cardiac disorder [Unknown]
  - Candida infection [Unknown]
